FAERS Safety Report 13826417 (Version 2)
Quarter: 2019Q2

REPORT INFORMATION
  Report Type: Spontaneous
  Country: US (occurrence: US)
  Receive Date: 20170802
  Receipt Date: 20190515
  Transmission Date: 20190711
  Serious: No
  Sender: FDA-Public Use
  Company Number: US-CELGENEUS-USA-20170708600

PATIENT
  Sex: Female

DRUGS (5)
  1. THALOMID [Suspect]
     Active Substance: THALIDOMIDE
     Indication: NEURODERMATITIS
     Dosage: 200 MILLIGRAM
     Route: 048
     Dates: start: 201706
  2. THALOMID [Suspect]
     Active Substance: THALIDOMIDE
     Dosage: 200 MILLIGRAM
     Route: 048
     Dates: start: 201708
  3. THALOMID [Suspect]
     Active Substance: THALIDOMIDE
     Indication: PARAESTHESIA
     Dosage: 100 MILLIGRAM
     Route: 048
     Dates: start: 20170112
  4. THALOMID [Suspect]
     Active Substance: THALIDOMIDE
     Dosage: 150 MILLIGRAM
     Route: 048
     Dates: start: 201707
  5. THALOMID [Suspect]
     Active Substance: THALIDOMIDE
     Indication: SKIN SENSITISATION
     Dosage: 150 MILLIGRAM
     Route: 048
     Dates: start: 201704

REACTIONS (4)
  - Swelling face [Recovering/Resolving]
  - Burning sensation [Not Recovered/Not Resolved]
  - Product dose omission [Unknown]
  - Anaemia [Unknown]

NARRATIVE: CASE EVENT DATE: 2017
